FAERS Safety Report 5312146-4 (Version None)
Quarter: 2007Q2

REPORT INFORMATION
  Report Type: 
  Country: None (occurrence: None)
  Receive Date: 20070430
  Receipt Date: 20060901
  Transmission Date: 20071010
  Serious: No
  Sender: FDA-Public Use
  Company Number: 2006UW17340

PATIENT
  Age: 63 Year
  Sex: Female
  Weight: 59 kg

DRUGS (6)
  1. NEXIUM [Suspect]
     Indication: GASTROOESOPHAGEAL REFLUX DISEASE
     Route: 048
  2. SYNTHROID [Concomitant]
  3. LITHIUM CARBONATE [Concomitant]
  4. MAGNESIUM SULFATE [Concomitant]
  5. VITAMIN [Concomitant]
  6. NASAL SPRAYS [Concomitant]

REACTIONS (5)
  - BURNING SENSATION [None]
  - COUGH [None]
  - DYSPHONIA [None]
  - ERUCTATION [None]
  - FATIGUE [None]
